FAERS Safety Report 9975863 (Version 1)
Quarter: 2014Q1

REPORT INFORMATION
  Report Type: Other
  Country: US (occurrence: US)
  Receive Date: 20140306
  Receipt Date: 20140306
  Transmission Date: 20141002
  Serious: Yes (Death)
  Sender: FDA-Public Use
  Company Number: US-FRI-1000054802

PATIENT
  Age: 21 Year
  Sex: Male

DRUGS (8)
  1. CITALOPRAM [Suspect]
  2. METHADONE [Suspect]
  3. OXYCODONE [Suspect]
  4. ACETAMINOPHEN/HYDROCODONE [Suspect]
  5. CLONAZEPAM [Suspect]
  6. QUETIAPINE [Suspect]
  7. VENLAFAXINE [Suspect]
  8. ARIPIRAZOLE [Suspect]

REACTIONS (1)
  - Cardio-respiratory arrest [Fatal]
